FAERS Safety Report 7536234-7 (Version None)
Quarter: 2011Q2

REPORT INFORMATION
  Report Type: 
  Country: None (occurrence: None)
  Receive Date: 20110602
  Receipt Date: 20100219
  Transmission Date: 20111010
  Serious: Yes (Disabling)
  Sender: FDA-Public Use
  Company Number: DK-SEPTODONT-201000038

PATIENT
  Age: 50 Year
  Sex: Female

DRUGS (1)
  1. SCANDONEST PLAIN [Suspect]
     Indication: LOCAL ANAESTHESIA
     Dosage: DENTAL
     Route: 004
     Dates: start: 20041105

REACTIONS (6)
  - VTH NERVE INJURY [None]
  - DYSGEUSIA [None]
  - ANAESTHETIC COMPLICATION [None]
  - DYSAESTHESIA [None]
  - HYPOAESTHESIA [None]
  - IATROGENIC INJURY [None]
